FAERS Safety Report 12232043 (Version 1)
Quarter: 2016Q2

REPORT INFORMATION
  Report Type: Spontaneous
  Country: US (occurrence: US)
  Receive Date: 20160401
  Receipt Date: 20160401
  Transmission Date: 20160815
  Serious: Yes (Hospitalization, Other)
  Sender: FDA-Public Use
  Company Number: US-GLAXOSMITHKLINE-US2016GSK043446

PATIENT
  Age: 61 Year
  Sex: Female

DRUGS (2)
  1. LAMICTAL [Suspect]
     Active Substance: LAMOTRIGINE
     Indication: EPILEPSY
     Dosage: 200 MG, UNK
     Dates: start: 200812
  2. LAMOTRIGINE. [Concomitant]
     Active Substance: LAMOTRIGINE

REACTIONS (6)
  - Condition aggravated [Unknown]
  - Brain injury [Unknown]
  - Hospitalisation [Unknown]
  - Fall [Unknown]
  - Cerebrovascular accident [Unknown]
  - Seizure [Unknown]

NARRATIVE: CASE EVENT DATE: 201512
